FAERS Safety Report 6312886-4 (Version None)
Quarter: 2009Q3

REPORT INFORMATION
  Report Type: 
  Country: None (occurrence: None)
  Receive Date: 20090818
  Receipt Date: 20090807
  Transmission Date: 20100115
  Serious: Yes (Other)
  Sender: FDA-Public Use
  Company Number: US-TYCO HEALTHCARE/MALLINCKRODT-T200901443

PATIENT
  Sex: Female

DRUGS (1)
  1. OPTIRAY 350 [Suspect]
     Indication: COMPUTERISED TOMOGRAM
     Dosage: 100 ML (CC), SINGLE
     Route: 042
     Dates: start: 20090727, end: 20090727

REACTIONS (3)
  - THROAT TIGHTNESS [None]
  - URTICARIA [None]
  - WHEEZING [None]
